FAERS Safety Report 19643403 (Version 8)
Quarter: 2022Q1

REPORT INFORMATION
  Report Type: Report from Study
  Country: US (occurrence: US)
  Receive Date: 20210731
  Receipt Date: 20220202
  Transmission Date: 20220423
  Serious: Yes (Hospitalization, Other)
  Sender: FDA-Public Use
  Company Number: US-NOVARTISPH-NVSC2021US171884

PATIENT
  Age: 59 Year
  Sex: Male

DRUGS (14)
  1. ENTRESTO [Suspect]
     Active Substance: SACUBITRIL\VALSARTAN
     Indication: Cardiac failure
     Dosage: 50 MG, BID 24/26 MG (2 TABLETS)
     Route: 048
     Dates: start: 20210726
  2. ENTRESTO [Suspect]
     Active Substance: SACUBITRIL\VALSARTAN
     Dosage: BID (49/51MG)
     Route: 048
     Dates: start: 202107
  3. METOPROLOL [Suspect]
     Active Substance: METOPROLOL
     Indication: Dizziness
     Dosage: 50 MG, BID
     Route: 065
  4. METOPROLOL [Suspect]
     Active Substance: METOPROLOL
     Indication: Dizziness
     Dosage: 50 MG, QD
     Route: 048
  5. METFORMIN [Suspect]
     Active Substance: METFORMIN HYDROCHLORIDE
     Indication: Blood glucose increased
     Dosage: 500 MG
     Route: 048
  6. OXYCODONE [Suspect]
     Active Substance: OXYCODONE
     Indication: Product used for unknown indication
     Dosage: UNK
     Route: 065
  7. ELIQUIS [Suspect]
     Active Substance: APIXABAN
     Indication: Product used for unknown indication
     Dosage: 5 MG, BID
     Route: 065
  8. LANTUS [Suspect]
     Active Substance: INSULIN GLARGINE
     Indication: Blood glucose increased
     Dosage: UNK
     Route: 065
  9. HUMALOG [Suspect]
     Active Substance: INSULIN LISPRO
     Indication: Blood glucose increased
     Dosage: UNK
     Route: 065
  10. SPIRONOLACTONE [Suspect]
     Active Substance: SPIRONOLACTONE
     Indication: Product used for unknown indication
     Dosage: UNK
     Route: 065
  11. CRESTOR [Suspect]
     Active Substance: ROSUVASTATIN CALCIUM
     Indication: Product used for unknown indication
     Dosage: UNK
     Route: 065
  12. LASIX [Suspect]
     Active Substance: FUROSEMIDE
     Indication: Product used for unknown indication
     Dosage: 20 MG, QD
     Route: 048
  13. LASIX [Suspect]
     Active Substance: FUROSEMIDE
     Dosage: 40 MG, QD (WAS TAKING 20 MG AND IS NOW TAKING 30MG IN THE AM AND 10MG IN PM)
     Route: 048
  14. UNSPECIFIED INGREDIENT [Concomitant]
     Active Substance: UNSPECIFIED INGREDIENT
     Indication: Product used for unknown indication
     Dosage: UNK
     Route: 065

REACTIONS (20)
  - COVID-19 [Recovered/Resolved]
  - Pulmonary embolism [Unknown]
  - Pulmonary fibrosis [Unknown]
  - Cardiac failure [Unknown]
  - Hypoxia [Unknown]
  - Diabetes mellitus [Unknown]
  - Throat clearing [Unknown]
  - Illness [Unknown]
  - Arthralgia [Recovering/Resolving]
  - Blood glucose increased [Unknown]
  - Depression [Unknown]
  - Lung disorder [Unknown]
  - Weight decreased [Unknown]
  - Swelling [Unknown]
  - Fatigue [Unknown]
  - Cough [Unknown]
  - Ejection fraction decreased [Recovering/Resolving]
  - Dizziness [Unknown]
  - Sleep apnoea syndrome [Unknown]
  - Inappropriate schedule of product administration [Unknown]

NARRATIVE: CASE EVENT DATE: 20210901
